FAERS Safety Report 12184357 (Version 1)
Quarter: 2016Q1

REPORT INFORMATION
  Report Type: Spontaneous
  Country: US (occurrence: US)
  Receive Date: 20160316
  Receipt Date: 20160316
  Transmission Date: 20160526
  Serious: No
  Sender: FDA-Public Use
  Company Number: US-BAXTER-2016BAX011257

PATIENT
  Sex: Male

DRUGS (2)
  1. DIANEAL LOW CALCIUM PERITONEAL DIALYSIS SOLUTION WITH DEXTROSE [Suspect]
     Active Substance: CALCIUM CHLORIDE\DEXTROSE\MAGNESIUM CHLORIDE\SODIUM CHLORIDE\SODIUM LACTATE
     Indication: PERITONEAL DIALYSIS
     Route: 033
  2. TESTOSTERONE. [Suspect]
     Active Substance: TESTOSTERONE
     Indication: LETHARGY
     Route: 065

REACTIONS (4)
  - Lethargy [Unknown]
  - Constipation [Unknown]
  - Injection site abscess [Unknown]
  - Dehydration [Unknown]
